FAERS Safety Report 17049199 (Version 1)
Quarter: 2019Q4

REPORT INFORMATION
  Report Type: Spontaneous
  Country: PT (occurrence: PT)
  Receive Date: 20191119
  Receipt Date: 20191119
  Transmission Date: 20200122
  Serious: Yes (Hospitalization)
  Sender: FDA-Public Use
  Company Number: NVSC2019PT039893

PATIENT
  Age: 21 Month

DRUGS (2)
  1. PARACETAMOL [Suspect]
     Active Substance: ACETAMINOPHEN
     Indication: PYREXIA
     Dosage: 15 MG/KG, Q8H
     Route: 065
  2. IBUPROFEN. [Suspect]
     Active Substance: IBUPROFEN
     Indication: PYREXIA
     Dosage: 7 MG/KG, Q8H
     Route: 065

REACTIONS (5)
  - Condition aggravated [Recovering/Resolving]
  - Varicella zoster virus infection [Recovering/Resolving]
  - Skin lesion [Recovering/Resolving]
  - Rash [Recovering/Resolving]
  - Pain [Recovering/Resolving]
